FAERS Safety Report 10170129 (Version 1)
Quarter: 2014Q2

REPORT INFORMATION
  Report Type: Spontaneous
  Country: CN (occurrence: CN)
  Receive Date: 20140513
  Receipt Date: 20140513
  Transmission Date: 20141212
  Serious: Yes (Disabling)
  Sender: FDA-Public Use
  Company Number: CN-BAXTER-2014BAX023166

PATIENT
  Age: 76 Year
  Sex: Male
  Weight: 60 kg

DRUGS (1)
  1. 20% MANNITOL INJECTION [Suspect]
     Indication: CEREBRAL HAEMORRHAGE
     Route: 041
     Dates: start: 20131119, end: 20131126

REACTIONS (1)
  - Renal impairment [Recovering/Resolving]
